FAERS Safety Report 6933569-3 (Version None)
Quarter: 2010Q3

REPORT INFORMATION
  Report Type: 
  Country: None (occurrence: None)
  Receive Date: 20100820
  Receipt Date: 20100813
  Transmission Date: 20110219
  Serious: Yes (Other)
  Sender: FDA-Public Use
  Company Number: NL-PFIZER INC-2010088928

PATIENT
  Age: 38 Year
  Sex: Female

DRUGS (9)
  1. METHYLPREDNISOLONE ACETATE [Suspect]
     Indication: MULTIPLE SCLEROSIS
     Dosage: 1000 MG, 1X/DAY
     Route: 042
     Dates: start: 20090706, end: 20090710
  2. METHYLPREDNISOLONE ACETATE [Suspect]
     Dosage: 1000 MG, 1X/DAY
     Route: 042
     Dates: start: 20100712, end: 20100716
  3. OMEPRAZOLE [Concomitant]
     Indication: PROPHYLAXIS
     Dosage: 20 MG, 1X/DAY
     Route: 048
  4. DEXAMETHASONE [Concomitant]
     Dosage: 4 MG, 1X/DAY
     Route: 048
  5. CIMETIDINE [Concomitant]
     Dosage: 400 MG, UNK
     Route: 048
  6. FOLIC ACID [Concomitant]
     Dosage: 2.5 MG, 1X/DAY
     Route: 048
  7. SINASPRIL [Concomitant]
     Dosage: 100 MG, 2X/DAY
     Route: 048
  8. TEMAZEPAM [Concomitant]
     Dosage: 10 MG, AS NEEDED
     Route: 048
  9. VESICARE [Concomitant]
     Indication: INCONTINENCE
     Dosage: 5 MG, 1X/DAY
     Route: 048

REACTIONS (6)
  - ABDOMINAL DISCOMFORT [None]
  - DYSGEUSIA [None]
  - FLUID RETENTION [None]
  - HYPOTENSION [None]
  - PALPITATIONS [None]
  - URINARY INCONTINENCE [None]
